FAERS Safety Report 8501272-4 (Version None)
Quarter: 2012Q3

REPORT INFORMATION
  Report Type: 
  Country: None (occurrence: None)
  Receive Date: 20120710
  Receipt Date: 20120628
  Transmission Date: 20120928
  Serious: Yes (Hospitalization)
  Sender: FDA-Public Use
  Company Number: CH-FRI-1000036918

PATIENT
  Sex: Female

DRUGS (10)
  1. ESCITALOPRAM [Suspect]
     Dosage: 10 MG
     Route: 048
  2. IBRUPROFEN [Suspect]
     Indication: BACK PAIN
     Route: 048
     Dates: start: 20120301, end: 20120404
  3. METHOTREXATE [Suspect]
     Indication: PSORIASIS
     Route: 048
     Dates: start: 20050801, end: 20120404
  4. FRAGMIN [Suspect]
     Indication: PROPHYLAXIS
     Dosage: 5000 IU
     Route: 058
     Dates: start: 20120301, end: 20120404
  5. CLARITHROMYCIN [Suspect]
     Indication: PNEUMONIA
     Dosage: 1000 MG
     Route: 048
     Dates: start: 20120323, end: 20120405
  6. ROCEPHIN [Suspect]
     Indication: PNEUMONIA
     Dosage: 2000 MG
     Route: 042
     Dates: start: 20120323, end: 20120405
  7. PANTOPRAZOLE [Concomitant]
     Dosage: 20 MG
     Route: 048
  8. RAMIPRIL [Concomitant]
     Dosage: 5 MG
     Route: 048
  9. PREDNISONE [Suspect]
     Indication: PSORIASIS
     Dosage: 10 MG
     Route: 048
     Dates: start: 20050801
  10. CALCIMAGON D3 [Concomitant]
     Route: 048

REACTIONS (3)
  - ANAEMIA [None]
  - ENTEROCOLITIS HAEMORRHAGIC [None]
  - GASTROINTESTINAL HAEMORRHAGE [None]
